FAERS Safety Report 6756144-2 (Version None)
Quarter: 2010Q2

REPORT INFORMATION
  Report Type: 
  Country: None (occurrence: None)
  Receive Date: 20100604
  Receipt Date: 20100525
  Transmission Date: 20101027
  Serious: Yes (Other)
  Sender: FDA-Public Use
  Company Number: BR-PFIZER INC-2010053507

PATIENT
  Age: 48 Year
  Sex: Female
  Weight: 95 kg

DRUGS (4)
  1. CHAMPIX [Suspect]
     Indication: NICOTINE DEPENDENCE
     Dosage: 0.5 MG, 1X/DAY (EVERY 24 HOURS)
     Route: 048
     Dates: start: 20100419
  2. CHAMPIX [Suspect]
     Dosage: 1 MG, 2X/DAY, EVERY 12 HOURS
     Route: 048
  3. CHAMPIX [Suspect]
     Dosage: 1 MG, 1X/DAY, 1 TABLET
     Route: 048
     Dates: end: 20100429
  4. ATACAND HCT [Concomitant]
     Indication: HYPERTENSION
     Dosage: 16 MG, 1X/DAY
     Dates: start: 20080101

REACTIONS (1)
  - NERVOUSNESS [None]
